FAERS Safety Report 7501863-3 (Version None)
Quarter: 2011Q2

REPORT INFORMATION
  Report Type: 
  Country: None (occurrence: None)
  Receive Date: 20110523
  Receipt Date: 20110523
  Transmission Date: 20111010
  Serious: No
  Sender: FDA-Public Use
  Company Number: None

PATIENT
  Sex: Female

DRUGS (1)
  1. BETASERON [Suspect]
     Indication: MULTIPLE SCLEROSIS
     Dosage: 0.25MG EVERY OTHER DAY SQ
     Dates: start: 20101201, end: 20110521

REACTIONS (3)
  - PAIN [None]
  - MYALGIA [None]
  - HYPOAESTHESIA [None]
